FAERS Safety Report 8184704-3 (Version None)
Quarter: 2012Q1

REPORT INFORMATION
  Report Type: 
  Country: None (occurrence: None)
  Receive Date: 20120305
  Receipt Date: 20120305
  Transmission Date: 20120608
  Serious: No
  Sender: FDA-Public Use
  Company Number: None

PATIENT
  Age: 47 Year
  Sex: Female
  Weight: 79.378 kg

DRUGS (1)
  1. RIBAVIRIN [Suspect]

REACTIONS (10)
  - DIABETES MELLITUS [None]
  - BASEDOW'S DISEASE [None]
  - FIBROMYALGIA [None]
  - PAIN [None]
  - HEPATIC CIRRHOSIS [None]
  - RHEUMATOID ARTHRITIS [None]
  - DYSPNOEA [None]
  - ECONOMIC PROBLEM [None]
  - STOMATITIS [None]
  - CHRONIC OBSTRUCTIVE PULMONARY DISEASE [None]
